FAERS Safety Report 7339095-4 (Version None)
Quarter: 2011Q1

REPORT INFORMATION
  Report Type: 
  Country: None (occurrence: None)
  Receive Date: 20110308
  Receipt Date: 20110301
  Transmission Date: 20110831
  Serious: Yes (Disabling, Other)
  Sender: FDA-Public Use
  Company Number: TR-GILEAD-2010-0032836

PATIENT
  Sex: Male
  Weight: 68 kg

DRUGS (4)
  1. LAMIVUDINE [Concomitant]
  2. VIREAD [Suspect]
     Indication: HEPATITIS B
     Route: 048
     Dates: start: 20090406
  3. HEPSERA [Concomitant]
     Indication: HEPATITIS B
  4. LAMIVUDINE [Concomitant]

REACTIONS (3)
  - DRUG INEFFECTIVE [None]
  - OSTEOPENIA [None]
  - VIRAL LOAD INCREASED [None]
